FAERS Safety Report 5416431-7 (Version None)
Quarter: 2007Q3

REPORT INFORMATION
  Report Type: 
  Country: None (occurrence: None)
  Receive Date: 20070816
  Receipt Date: 20070808
  Transmission Date: 20080115
  Serious: Yes (Other)
  Sender: FDA-Public Use
  Company Number: US-JNJFOC-20070802352

PATIENT
  Sex: Male
  Weight: 77.57 kg

DRUGS (6)
  1. DURAGESIC-100 [Suspect]
     Indication: NECK PAIN
     Route: 062
  2. OXYCONTIN [Concomitant]
     Indication: NECK PAIN
     Route: 048
  3. FENTORA [Concomitant]
     Indication: NECK PAIN
     Route: 048
  4. TOPAMAX [Concomitant]
     Indication: PAIN
     Route: 048
  5. ZOCOR [Concomitant]
     Indication: BLOOD CHOLESTEROL
     Route: 048
  6. ACIPHEX [Concomitant]
     Indication: GASTROOESOPHAGEAL REFLUX DISEASE
     Route: 048

REACTIONS (1)
  - RENAL IMPAIRMENT [None]
